FAERS Safety Report 26156855 (Version 1)
Quarter: 2025Q4

REPORT INFORMATION
  Report Type: Spontaneous
  Country: US (occurrence: US)
  Receive Date: 20251215
  Receipt Date: 20251215
  Transmission Date: 20260118
  Serious: No
  Sender: ALCON
  Company Number: US-ALCON LABORATORIES-ALC2025US006860

PATIENT
  Age: 44 Year
  Sex: Male

DRUGS (1)
  1. ACOLTREMON [Suspect]
     Active Substance: ACOLTREMON
     Indication: Meibomian gland dysfunction
     Dosage: INSTILL 1 DROP TO EACH EYE EVERY 12 HOURS
     Route: 047
     Dates: start: 20251114, end: 20251114

REACTIONS (3)
  - Dry eye [Unknown]
  - Eye pain [Unknown]
  - Condition aggravated [Unknown]
